FAERS Safety Report 9511038 (Version 2)
Quarter: 2013Q4

REPORT INFORMATION
  Report Type: Spontaneous
  Country: FR (occurrence: FR)
  Receive Date: 20130910
  Receipt Date: 20131024
  Transmission Date: 20140711
  Serious: Yes (Death, Other)
  Sender: FDA-Public Use
  Company Number: FR-009507513-1309FRA002250

PATIENT
  Age: 33 Year
  Sex: Male

DRUGS (5)
  1. ORGARAN [Suspect]
     Indication: PRODUCT USED FOR UNKNOWN INDICATION
     Route: 065
  2. AMBISOME [Suspect]
     Indication: ASPERGILLUS INFECTION
     Dosage: 8 MG/KG, QD
     Route: 065
     Dates: start: 20130423, end: 20130514
  3. CANCIDAS [Concomitant]
  4. MORPHINE [Concomitant]
     Dosage: UNK
  5. FLUCONAZOLE [Concomitant]

REACTIONS (1)
  - Jaundice cholestatic [Fatal]
